FAERS Safety Report 25270297 (Version 1)
Quarter: 2025Q2

REPORT INFORMATION
  Report Type: Spontaneous
  Country: TW (occurrence: TW)
  Receive Date: 20250505
  Receipt Date: 20250505
  Transmission Date: 20250717
  Serious: Yes (Life-Threatening)
  Sender: DAIICHI
  Company Number: TW-DSJP-DS-2025-139096-TW

PATIENT
  Age: 55 Year
  Sex: Female
  Weight: 52 kg

DRUGS (14)
  1. TRASTUZUMAB DERUXTECAN [Suspect]
     Active Substance: TRASTUZUMAB DERUXTECAN
     Indication: Breast cancer
     Route: 041
     Dates: start: 20250423, end: 20250423
  2. METOCLOPRAMIDE [Concomitant]
     Active Substance: METOCLOPRAMIDE
     Indication: Nausea
     Dosage: 10 MG, ONCE EVERY 12HR
     Route: 041
     Dates: start: 20250426, end: 20250427
  3. METOCLOPRAMIDE [Concomitant]
     Active Substance: METOCLOPRAMIDE
     Indication: Vomiting
     Route: 041
     Dates: start: 20250428, end: 20250428
  4. ACETAMINOPHEN\TRAMADOL HYDROCHLORIDE [Concomitant]
     Active Substance: ACETAMINOPHEN\TRAMADOL HYDROCHLORIDE
     Indication: Product used for unknown indication
     Dosage: 1 DOSAGE FORM, QID
     Route: 065
     Dates: start: 20250414, end: 20250428
  5. LENOZOLE [Concomitant]
     Indication: Product used for unknown indication
     Dosage: 2.5 MG, QD
     Route: 065
     Dates: start: 20250415, end: 20250427
  6. GIGA [MEGESTROL ACETATE] [Concomitant]
     Indication: Product used for unknown indication
     Dosage: 4 UNK, QD (4.0  C.C)
     Route: 065
     Dates: start: 20250421, end: 20250427
  7. MEDASON [Concomitant]
     Indication: Product used for unknown indication
     Dosage: 40 MG, ONCE EVERY 8HR
     Route: 041
     Dates: start: 20250422, end: 20250428
  8. CONSLIFE [BISACODYL;DOCUSATE SODIUM;SENNOSIDES NOS] [Concomitant]
     Indication: Product used for unknown indication
     Dosage: 2 DOSAGE FORM, QD
     Route: 065
     Dates: start: 20250426, end: 20250427
  9. BISACODYL [Concomitant]
     Active Substance: BISACODYL
     Indication: Product used for unknown indication
     Dosage: 2 UNK, QD
     Route: 065
     Dates: start: 20250427, end: 20250427
  10. TYGACIL [Concomitant]
     Active Substance: TIGECYCLINE
     Indication: Product used for unknown indication
     Dosage: 50 MG, ONCE EVERY 12HR
     Route: 041
     Dates: start: 20250428, end: 20250501
  11. EMAZOLE [ESOMEPRAZOLE SODIUM] [Concomitant]
     Indication: Product used for unknown indication
     Dosage: 40 MG, ONCE EVERY 12HR
     Route: 041
     Dates: start: 20250428
  12. PIPERACILLIN SODIUM\TAZOBACTAM SODIUM [Concomitant]
     Active Substance: PIPERACILLIN SODIUM\TAZOBACTAM SODIUM
     Indication: Product used for unknown indication
     Route: 041
     Dates: start: 20250428
  13. B COMPLEX [NICOTINAMIDE;PYRIDOXINE HYDROCHLORIDE;RIBOFLAVIN;THIAMINE H [Concomitant]
     Indication: Product used for unknown indication
     Route: 065
     Dates: start: 20250429, end: 20250429
  14. AMINO ACIDS\DEXTROSE\ELECTROLYTES NOS\VITAMINS [Concomitant]
     Active Substance: AMINO ACIDS\DEXTROSE\ELECTROLYTES NOS\VITAMINS
     Indication: Product used for unknown indication
     Dosage: UNK UNK, QD
     Route: 041
     Dates: start: 20250429, end: 20250429

REACTIONS (1)
  - Peptic ulcer perforation [Recovering/Resolving]

NARRATIVE: CASE EVENT DATE: 20250428
